FAERS Safety Report 13792681 (Version 1)
Quarter: 2017Q3

REPORT INFORMATION
  Report Type: Spontaneous
  Country: BR (occurrence: BR)
  Receive Date: 20170726
  Receipt Date: 20170726
  Transmission Date: 20171127
  Serious: Yes (Death, Hospitalization)
  Sender: FDA-Public Use
  Company Number: BR-PFIZER INC-2017170608

PATIENT
  Age: 50 Year
  Sex: Male

DRUGS (3)
  1. OMEPRAZOLE. [Concomitant]
     Active Substance: OMEPRAZOLE
     Indication: GASTRIC DISORDER
     Dosage: UNK
     Dates: start: 201704
  2. SUTENT [Suspect]
     Active Substance: SUNITINIB MALATE
     Indication: METASTASES TO LUNG
     Dosage: 50 MG, DAILY FOR 2 WEEKS AND STOPPED FOR ONE WEEK
     Dates: start: 20170407
  3. SUTENT [Suspect]
     Active Substance: SUNITINIB MALATE
     Indication: RENAL CANCER

REACTIONS (9)
  - Pain [Not Recovered/Not Resolved]
  - Swelling face [Recovered/Resolved]
  - Memory impairment [Not Recovered/Not Resolved]
  - Neoplasm progression [Fatal]
  - Metastases to bone [Fatal]
  - Drug ineffective [Fatal]
  - Pleural effusion [Fatal]
  - Peripheral swelling [Not Recovered/Not Resolved]
  - Product use issue [Unknown]

NARRATIVE: CASE EVENT DATE: 201704
